FAERS Safety Report 6357563-9 (Version None)
Quarter: 2009Q3

REPORT INFORMATION
  Report Type: 
  Country: None (occurrence: None)
  Receive Date: 20090916
  Receipt Date: 20090907
  Transmission Date: 20100115
  Serious: Yes (Other)
  Sender: FDA-Public Use
  Company Number: PHHY2009GB38325

PATIENT
  Sex: Female

DRUGS (4)
  1. FEMARA [Suspect]
     Route: 048
  2. GLUCOSAMINE [Concomitant]
  3. COD-LIVER OIL [Concomitant]
  4. AMITRIPTYLINE [Concomitant]

REACTIONS (6)
  - ARTHRALGIA [None]
  - BURNING SENSATION [None]
  - ERYTHEMA [None]
  - HOT FLUSH [None]
  - MASS [None]
  - PAIN [None]
